FAERS Safety Report 21333011 (Version 13)
Quarter: 2023Q4

REPORT INFORMATION
  Report Type: Report from Study
  Country: US (occurrence: US)
  Receive Date: 20220914
  Receipt Date: 20231108
  Transmission Date: 20240110
  Serious: No
  Sender: FDA-Public Use
  Company Number: US-NOVARTISTESTPH-NVSC2022US206310

PATIENT
  Age: 50 Year
  Sex: Male

DRUGS (4)
  1. KESIMPTA [Suspect]
     Active Substance: OFATUMUMAB
     Indication: Relapsing multiple sclerosis
     Dosage: 20 MG, QMO
     Route: 058
     Dates: start: 20220907
  2. KESIMPTA [Suspect]
     Active Substance: OFATUMUMAB
     Indication: Relapsing-remitting multiple sclerosis
  3. KESIMPTA [Suspect]
     Active Substance: OFATUMUMAB
     Indication: Clinically isolated syndrome
  4. KESIMPTA [Suspect]
     Active Substance: OFATUMUMAB
     Indication: Secondary progressive multiple sclerosis

REACTIONS (14)
  - Feeling hot [Recovered/Resolved]
  - Migraine [Recovering/Resolving]
  - Chronic obstructive pulmonary disease [Unknown]
  - Pulmonary pain [Unknown]
  - Visual impairment [Unknown]
  - Fall [Unknown]
  - Malaise [Unknown]
  - Low lung compliance [Unknown]
  - Muscular weakness [Unknown]
  - Respiratory rate decreased [Unknown]
  - Headache [Recovered/Resolved]
  - Headache [Unknown]
  - Chills [Recovered/Resolved]
  - Inappropriate schedule of product administration [Unknown]

NARRATIVE: CASE EVENT DATE: 20220907
